FAERS Safety Report 10249173 (Version 2)
Quarter: 2014Q2

REPORT INFORMATION
  Report Type: Spontaneous
  Country: JP (occurrence: JP)
  Receive Date: 20140620
  Receipt Date: 20140620
  Transmission Date: 20141212
  Serious: Yes (Death)
  Sender: FDA-Public Use
  Company Number: JP-MALLINCKRODT-T201402204

PATIENT
  Age: 73 Year
  Sex: Male

DRUGS (17)
  1. METHADONE [Suspect]
     Indication: CANCER PAIN
     Dosage: 5 MG, (15 MG DAILY DOSE)
     Route: 048
     Dates: start: 20140410, end: 20140507
  2. METHADONE [Suspect]
     Dosage: 10 MG; (20 MG DAILY DOSE)
     Route: 048
     Dates: start: 20140508, end: 20140514
  3. OXINORM [Concomitant]
     Dosage: 10 MG, PRN
     Route: 048
     Dates: start: 20140226
  4. AMLODIN [Concomitant]
     Dosage: 2.5 MG, UNK
     Route: 048
     Dates: end: 20140417
  5. BLOPRESS [Concomitant]
     Dosage: 4 MG, UNK
     Route: 048
     Dates: end: 20140417
  6. MAGMITT [Concomitant]
     Dosage: 1980 MG, UNK
     Route: 048
     Dates: end: 20140514
  7. LOXONIN [Concomitant]
     Dosage: 180 MG, UNK
     Route: 048
     Dates: end: 20140514
  8. SINGULAIR [Concomitant]
     Dosage: 5 MG, UNK
     Route: 048
     Dates: end: 20140417
  9. NAUZELIN [Concomitant]
     Dosage: 30 MG, UNK
     Route: 048
     Dates: end: 20140423
  10. RINDERON [Concomitant]
     Dosage: 1 MG, UNK
     Route: 048
     Dates: end: 20140423
  11. RINDERON [Concomitant]
     Dosage: 2 MG, UNK
     Route: 048
     Dates: start: 20140424, end: 20140514
  12. ALINAMIN [Concomitant]
     Dosage: 25 MG, UNK
     Route: 048
     Dates: end: 20140514
  13. KENEI G ENEMA [Concomitant]
     Dosage: 60 ML, UNK
     Route: 054
     Dates: end: 20140514
  14. SOLDEM [Concomitant]
     Dosage: 500 ML, UNK
     Route: 051
     Dates: start: 20140326, end: 20140506
  15. ZYPREXA [Concomitant]
     Dosage: 2.5 MG, UNK
     Route: 048
     Dates: start: 20140424, end: 20140425
  16. OXYCONTIN [Concomitant]
     Indication: CANCER PAIN
     Dosage: UNK
     Dates: end: 20140420
  17. SOLULACT [Concomitant]
     Dosage: 500 ML, UNK
     Route: 051
     Dates: start: 20140508, end: 20140513

REACTIONS (13)
  - Colon cancer [Fatal]
  - Hypotension [Recovered/Resolved]
  - Vomiting [Recovering/Resolving]
  - Hypoproteinaemia [Unknown]
  - Hypoalbuminaemia [Unknown]
  - Hyperphosphatasaemia [Unknown]
  - Blood lactate dehydrogenase increased [Unknown]
  - Hyponatraemia [Unknown]
  - Hypochloraemia [Unknown]
  - C-reactive protein increased [Unknown]
  - Anaemia [Unknown]
  - Somnolence [Recovering/Resolving]
  - Decreased appetite [Not Recovered/Not Resolved]
